FAERS Safety Report 9306861 (Version 1)
Quarter: 2013Q2

REPORT INFORMATION
  Report Type: Spontaneous
  Country: US (occurrence: US)
  Receive Date: 20130523
  Receipt Date: 20130523
  Transmission Date: 20140414
  Serious: Yes (Other)
  Sender: FDA-Public Use
  Company Number: CHPA2013US008670

PATIENT
  Age: 82 Year
  Sex: Female

DRUGS (3)
  1. MAALOX ANTACID/ANTIGAS MAX QDTABS ASST [Suspect]
     Indication: ABDOMINAL DISTENSION
     Dosage: 2 DF, UNK
     Route: 048
  2. MAALOX ANTACID/ANTIGAS MAX QDTABS ASST [Suspect]
     Indication: FLATULENCE
  3. ALLEGRA [Concomitant]
     Indication: SEASONAL ALLERGY
     Dosage: UNK, UNK
     Route: 048

REACTIONS (2)
  - Breast cancer female [Recovered/Resolved]
  - Therapeutic response unexpected [Unknown]
